FAERS Safety Report 20057606 (Version 1)
Quarter: 2021Q4

REPORT INFORMATION
  Report Type: Spontaneous
  Country: US (occurrence: None)
  Receive Date: 20211111
  Receipt Date: 20211111
  Transmission Date: 20220303
  Serious: Yes (Other)
  Sender: FDA-Public Use
  Company Number: None

PATIENT
  Age: 30 Year
  Sex: Female
  Weight: 74 kg

DRUGS (2)
  1. CIPRALEX [Suspect]
     Active Substance: ESCITALOPRAM OXALATE
     Indication: Depression
     Dosage: OTHER QUANTITY : 1 TABLET(S);?
     Route: 048
     Dates: start: 20210819, end: 20211103
  2. LEVONORGESTREL [Concomitant]
     Active Substance: LEVONORGESTREL

REACTIONS (2)
  - Alopecia [None]
  - Electric shock sensation [None]

NARRATIVE: CASE EVENT DATE: 20211030
